FAERS Safety Report 11295079 (Version 3)
Quarter: 2015Q3

REPORT INFORMATION
  Report Type: Report from Study
  Country: PE (occurrence: PE)
  Receive Date: 20150723
  Receipt Date: 20150928
  Transmission Date: 20151125
  Serious: Yes (Hospitalization)
  Sender: FDA-Public Use
  Company Number: PE-ROCHE-1611249

PATIENT
  Age: 8 Year
  Sex: Male

DRUGS (2)
  1. PULMOZYME [Suspect]
     Active Substance: DORNASE ALFA
     Indication: CYSTIC FIBROSIS
     Route: 048
     Dates: start: 201101
  2. PULMOZYME [Suspect]
     Active Substance: DORNASE ALFA
     Dosage: 2.5MG/2.5 ML. DATE OF LAST DOSE ADMINISTERED 12/JUL/2015
     Route: 048
     Dates: start: 20120108

REACTIONS (8)
  - Productive cough [Not Recovered/Not Resolved]
  - Chest pain [Recovered/Resolved]
  - Asthenia [Recovered/Resolved]
  - Vomiting [Recovered/Resolved]
  - Cough [Recovering/Resolving]
  - Aspergillus infection [Recovered/Resolved]
  - Pseudomonas infection [Recovered/Resolved]
  - Agitation [Recovered/Resolved]

NARRATIVE: CASE EVENT DATE: 20140225
